FAERS Safety Report 19085709 (Version 2)
Quarter: 2021Q2

REPORT INFORMATION
  Report Type: Other
  Country: BR (occurrence: BR)
  Receive Date: 20210402
  Receipt Date: 20210429
  Transmission Date: 20210717
  Serious: Yes (Death, Hospitalization, Other)
  Sender: FDA-Public Use
  Company Number: BR-ROCHE-1584767

PATIENT
  Age: 54 Year
  Sex: Female
  Weight: 104 kg

DRUGS (31)
  1. XOLAIR [Suspect]
     Active Substance: OMALIZUMAB
     Route: 058
     Dates: start: 201611
  2. XOLAIR [Suspect]
     Active Substance: OMALIZUMAB
     Route: 058
     Dates: start: 201707
  3. PREDNISONE. [Concomitant]
     Active Substance: PREDNISONE
     Indication: ASTHMA
     Route: 048
     Dates: start: 2001
  4. BUDESONIDA [Concomitant]
     Active Substance: BUDESONIDE
     Indication: PRODUCT USED FOR UNKNOWN INDICATION
     Dosage: 01 JET A DAY
     Route: 055
  5. ATORVASTATIN [Concomitant]
     Active Substance: ATORVASTATIN
     Indication: BLOOD CHOLESTEROL INCREASED
     Dosage: 3 YEARS AGO
     Route: 048
  6. OMEPRAZOLE. [Concomitant]
     Active Substance: OMEPRAZOLE
     Indication: REFLUX GASTRITIS
     Dosage: 4 DF, QD SINCE 7 YEARS AGO
     Route: 048
  7. XOLAIR [Suspect]
     Active Substance: OMALIZUMAB
     Route: 058
     Dates: start: 201612
  8. BUDESONIDE. [Concomitant]
     Active Substance: BUDESONIDE
     Indication: ASTHMA
     Route: 055
  9. SPIRIVA [Concomitant]
     Active Substance: TIOTROPIUM BROMIDE MONOHYDRATE
     Indication: ASTHMA
     Dosage: IN THE MORNING
     Route: 055
  10. BUDESONIDA [Concomitant]
     Active Substance: BUDESONIDE
     Route: 045
  11. MONTELUKAST SODIUM. [Concomitant]
     Active Substance: MONTELUKAST SODIUM
     Indication: ASTHMA
     Dosage: AT NIGHT?SINCE 7 YEARS AGO
     Route: 048
  12. XOLAIR [Suspect]
     Active Substance: OMALIZUMAB
     Indication: ASTHMA
     Route: 058
     Dates: start: 20110203
  13. XOLAIR [Suspect]
     Active Substance: OMALIZUMAB
     Route: 058
     Dates: start: 20170131
  14. XOLAIR [Suspect]
     Active Substance: OMALIZUMAB
     Route: 058
     Dates: start: 201802
  15. PREDNISONE. [Concomitant]
     Active Substance: PREDNISONE
     Route: 048
  16. MODURETIC 5?50 [Concomitant]
     Active Substance: AMILORIDE HYDROCHLORIDE\HYDROCHLOROTHIAZIDE
     Indication: FLUID RETENTION
     Dosage: MORE THAN 6 YEARS USE
     Route: 048
  17. DONAREN [Concomitant]
     Active Substance: TRAZODONE HYDROCHLORIDE
     Indication: ANXIETY
     Dosage: 6 MONTHS AGO
     Route: 048
  18. DONAREN [Concomitant]
     Active Substance: TRAZODONE HYDROCHLORIDE
     Indication: INSOMNIA
  19. INSULIN [Concomitant]
     Active Substance: INSULIN NOS
     Indication: PRODUCT USED FOR UNKNOWN INDICATION
     Route: 065
  20. VANNAIR [Concomitant]
     Active Substance: BUDESONIDE\FORMOTEROL FUMARATE DIHYDRATE
     Indication: PRODUCT USED FOR UNKNOWN INDICATION
     Dosage: 6 PER 200 MG (02 JETS A DAY)
     Route: 055
     Dates: start: 2011
  21. SPIRIVA [Concomitant]
     Active Substance: TIOTROPIUM BROMIDE MONOHYDRATE
     Indication: CHRONIC OBSTRUCTIVE PULMONARY DISEASE
     Dosage: SINCE 5 YEARS AGO
     Route: 055
  22. ADDERA D3 [Concomitant]
     Active Substance: CHOLECALCIFEROL
     Dosage: 1 DF, QD (3 YEARS AGO)
     Route: 048
  23. XOLAIR [Suspect]
     Active Substance: OMALIZUMAB
     Dosage: UNK, STOPPED ABOUT 1 YEAR AGO
     Route: 058
  24. PREDNISOLONE. [Suspect]
     Active Substance: PREDNISOLONE
     Indication: ASTHMA
     Dosage: UNK (STARTED 15 YEARS AGO)
     Route: 065
  25. MONTELUKAST SODIUM. [Concomitant]
     Active Substance: MONTELUKAST SODIUM
     Indication: HYPERSENSITIVITY
     Dosage: AT NIGHT
     Route: 048
  26. ATORVASTATIN [Concomitant]
     Active Substance: ATORVASTATIN
     Indication: HEPATIC STEATOSIS
  27. XOLAIR [Suspect]
     Active Substance: OMALIZUMAB
     Route: 058
  28. LATANOPROST. [Concomitant]
     Active Substance: LATANOPROST
     Indication: INTRAOCULAR PRESSURE INCREASED
     Dosage: SINCE 7 YEARS AGO
     Route: 047
  29. DORZOLAMIDE [Concomitant]
     Active Substance: DORZOLAMIDE
     Indication: INTRAOCULAR PRESSURE TEST
     Dosage: SINCE 7 YEARS AGO
     Route: 047
  30. AZITHROMYCIN ANHYDROUS. [Concomitant]
     Active Substance: AZITHROMYCIN ANHYDROUS
     Indication: ANTIBIOTIC THERAPY
     Dosage: 3 DAYS A WEEK,MONDAY, WEDNESDAY, AND FRIDAY
     Route: 048
  31. SALBUTAMOL [Concomitant]
     Active Substance: ALBUTEROL
     Indication: PRODUCT USED FOR UNKNOWN INDICATION
     Dosage: DOSE IS INCREASED WHEN SHE EXPERIENCE ANXIETY CRISIS
     Route: 065

REACTIONS (33)
  - Death [Fatal]
  - Asthma [Not Recovered/Not Resolved]
  - Cataract [Recovered/Resolved]
  - Chest discomfort [Recovering/Resolving]
  - Immunodeficiency [Not Recovered/Not Resolved]
  - Fatigue [Unknown]
  - Viral infection [Recovering/Resolving]
  - Anxiety [Recovering/Resolving]
  - Blood creatinine abnormal [Not Recovered/Not Resolved]
  - Increased bronchial secretion [Recovering/Resolving]
  - Sensitivity to weather change [Recovering/Resolving]
  - Bronchospasm [Not Recovered/Not Resolved]
  - Pulmonary function test decreased [Unknown]
  - Muscle fatigue [Recovering/Resolving]
  - Influenza [Recovering/Resolving]
  - Urinary tract infection [Recovering/Resolving]
  - Renal failure [Not Recovered/Not Resolved]
  - Bronchitis [Recovering/Resolving]
  - Drug resistance [Unknown]
  - Malaise [Unknown]
  - Asthmatic crisis [Not Recovered/Not Resolved]
  - Diabetes mellitus [Not Recovered/Not Resolved]
  - Infection [Recovered/Resolved]
  - Gait inability [Not Recovered/Not Resolved]
  - Pneumonia [Recovering/Resolving]
  - Sinusitis [Recovering/Resolving]
  - Sinusitis [Recovering/Resolving]
  - Feeling abnormal [Unknown]
  - Nasopharyngitis [Recovered/Resolved]
  - Smoke sensitivity [Unknown]
  - Rhinitis [Recovered/Resolved]
  - Asthenia [Not Recovered/Not Resolved]
  - Dyspnoea [Not Recovered/Not Resolved]

NARRATIVE: CASE EVENT DATE: 20150423
